FAERS Safety Report 10157102 (Version 2)
Quarter: 2014Q2

REPORT INFORMATION
  Report Type: Spontaneous
  Country: US (occurrence: US)
  Receive Date: 20140507
  Receipt Date: 20140611
  Transmission Date: 20141212
  Serious: Yes (Death, Hospitalization)
  Sender: FDA-Public Use
  Company Number: US-INCYTE CORPORATION-2014IN001167

PATIENT
  Sex: Male

DRUGS (8)
  1. JAKAFI [Suspect]
     Indication: ESSENTIAL THROMBOCYTHAEMIA
     Dosage: 15 MG, BID
     Route: 048
     Dates: start: 20130917
  2. JAKAFI [Suspect]
     Indication: MYELOPROLIFERATIVE DISORDER
  3. ENALAPRIL [Concomitant]
  4. CARVEDILOL [Concomitant]
  5. SIMVASTATIN [Concomitant]
  6. DOXAZOSIN [Concomitant]
  7. HYDROCHLOROTHIAZIDE [Concomitant]
  8. ANAGRELIDE [Concomitant]

REACTIONS (2)
  - Death [Fatal]
  - Pneumonia [Unknown]
